FAERS Safety Report 13577393 (Version 1)
Quarter: 2017Q2

REPORT INFORMATION
  Report Type: Spontaneous
  Country: GB (occurrence: GB)
  Receive Date: 20170524
  Receipt Date: 20170524
  Transmission Date: 20170830
  Serious: Yes (Other)
  Sender: FDA-Public Use
  Company Number: GB-TEVA-768981ACC

PATIENT
  Age: 33 Year
  Sex: Male
  Weight: 40 kg

DRUGS (2)
  1. PROPRANOLOL [Suspect]
     Active Substance: PROPRANOLOL HYDROCHLORIDE
     Indication: AGITATION
     Dosage: 80 MILLIGRAM DAILY;
     Route: 048
     Dates: start: 20170227, end: 20170310
  2. PERICYAZINE [Concomitant]
     Active Substance: PERICIAZINE
     Dosage: TWO-THREE TIMES A DAY

REACTIONS (2)
  - Hyperkalaemia [Recovered/Resolved]
  - Abnormal behaviour [Unknown]
